FAERS Safety Report 4670267-3 (Version None)
Quarter: 2005Q2

REPORT INFORMATION
  Report Type: 
  Country: None (occurrence: None)
  Receive Date: 20050519
  Receipt Date: 20050223
  Transmission Date: 20051028
  Serious: No
  Sender: FDA-Public Use
  Company Number: SUS1-2005-00140

PATIENT
  Age: 27 Year
  Sex: Male

DRUGS (5)
  1. FOSRENOL [Suspect]
     Indication: HYPERPHOSPHATAEMIA
     Dosage: SEE IMAGE
     Dates: start: 20050127, end: 20050210
  2. FOSRENOL [Suspect]
     Indication: HYPERPHOSPHATAEMIA
     Dosage: SEE IMAGE
     Dates: start: 20050220
  3. DIGOXIN [Concomitant]
  4. LISINOPRIL [Concomitant]
  5. COREG [Concomitant]

REACTIONS (1)
  - RASH [None]
